FAERS Safety Report 20004474 (Version 1)
Quarter: 2021Q4

REPORT INFORMATION
  Report Type: Spontaneous
  Country: GB (occurrence: GB)
  Receive Date: 20211027
  Receipt Date: 20211027
  Transmission Date: 20220304
  Serious: Yes (Other)
  Sender: FDA-Public Use
  Company Number: None

PATIENT
  Age: 62 Year
  Sex: Female
  Weight: 63.5 kg

DRUGS (2)
  1. ESOMEPRAZOLE [Suspect]
     Active Substance: ESOMEPRAZOLE
     Indication: Barrett^s oesophagus
     Dosage: 20 MILLIGRAM
     Route: 048
     Dates: start: 20210921, end: 20211018
  2. GAVISCON DOUBLE ACTION [Concomitant]
     Dosage: UNK

REACTIONS (7)
  - Abdominal distension [Recovered/Resolved]
  - Breast tenderness [Not Recovered/Not Resolved]
  - Defaecation urgency [Recovered/Resolved]
  - Eructation [Recovered/Resolved]
  - Peripheral swelling [Unknown]
  - Flatulence [Recovered/Resolved]
  - Product substitution issue [Unknown]

NARRATIVE: CASE EVENT DATE: 20210921
